FAERS Safety Report 22011290 (Version 3)
Quarter: 2023Q1

REPORT INFORMATION
  Report Type: Spontaneous
  Country: US (occurrence: US)
  Receive Date: 20230220
  Receipt Date: 20230310
  Transmission Date: 20230418
  Serious: Yes (Hospitalization)
  Sender: FDA-Public Use
  Company Number: US-AMGEN-USASP2023026680

PATIENT
  Sex: Female

DRUGS (11)
  1. OTEZLA [Suspect]
     Active Substance: APREMILAST
     Indication: Migraine
     Dosage: 30 MILLIGRAM, BID
     Route: 048
  2. OTEZLA [Suspect]
     Active Substance: APREMILAST
     Indication: Psoriatic arthropathy
  3. ZANAFLEX [Concomitant]
     Active Substance: TIZANIDINE HYDROCHLORIDE
     Dosage: UNK
  4. VITAMIN D2 [Concomitant]
     Active Substance: ERGOCALCIFEROL
     Dosage: UNK
  5. EFFEXOR [Concomitant]
     Active Substance: VENLAFAXINE HYDROCHLORIDE
     Dosage: UNK
  6. LEVOTHYROXINE SODIUM [Concomitant]
     Active Substance: LEVOTHYROXINE SODIUM
     Dosage: UNK
  7. FISH OIL [Concomitant]
     Active Substance: FISH OIL
  8. VOLTAREN [Concomitant]
     Active Substance: DICLOFENAC SODIUM
  9. LISINOPRIL [Concomitant]
     Active Substance: LISINOPRIL
  10. XELJANZ XR [Concomitant]
     Active Substance: TOFACITINIB CITRATE
  11. MOBIC [Concomitant]
     Active Substance: MELOXICAM

REACTIONS (2)
  - Intervertebral disc protrusion [Recovering/Resolving]
  - Feeling abnormal [Unknown]
